FAERS Safety Report 18021887 (Version 1)
Quarter: 2020Q3

REPORT INFORMATION
  Report Type: Spontaneous
  Country: FR (occurrence: FR)
  Receive Date: 20200714
  Receipt Date: 20200714
  Transmission Date: 20201103
  Serious: Yes (Other)
  Sender: FDA-Public Use
  Company Number: FR-PFIZER INC-2020265505

PATIENT
  Age: 43 Year
  Sex: Female

DRUGS (1)
  1. ATRACURIUM BESILATE [Suspect]
     Active Substance: ATRACURIUM BESYLATE
     Dosage: 1 DF, SINGLE
     Route: 023
     Dates: start: 20200608

REACTIONS (1)
  - Skin test positive [Recovered/Resolved]

NARRATIVE: CASE EVENT DATE: 20200608
